FAERS Safety Report 8354351 (Version 4)
Quarter: 2013Q2

REPORT INFORMATION
  Report Type: Spontaneous
  Country: JP (occurrence: JP)
  Receive Date: 20120125
  Receipt Date: 20130415
  Transmission Date: 20140414
  Serious: Yes (Hospitalization)
  Sender: FDA-Public Use
  Company Number: JP-GLAXOSMITHKLINE-B0775704A

PATIENT
  Age: 79 Year
  Sex: Female
  Weight: 65 kg

DRUGS (10)
  1. VALTREX [Suspect]
     Indication: HERPES ZOSTER
     Dosage: 1000MG THREE TIMES PER DAY
     Route: 048
     Dates: start: 20120111, end: 20120112
  2. UNKNOWN DRUG [Concomitant]
     Dates: start: 20120112, end: 20120113
  3. CALONAL [Concomitant]
     Indication: HERPES ZOSTER
     Dosage: .4G THREE TIMES PER DAY
     Route: 048
     Dates: start: 20120111
  4. METHYCOBAL [Concomitant]
     Indication: HERPES ZOSTER
     Dosage: 500MCG THREE TIMES PER DAY
     Route: 048
     Dates: start: 20120111
  5. MUCOSTA [Concomitant]
     Indication: HERPES ZOSTER
     Dosage: 100MG THREE TIMES PER DAY
     Route: 048
     Dates: start: 20120111
  6. NORVASC [Concomitant]
     Route: 048
  7. HERBESSER [Concomitant]
     Route: 065
  8. SIGMART [Concomitant]
     Route: 065
  9. PLETAAL [Concomitant]
     Route: 048
  10. MEVALOTIN [Concomitant]
     Route: 048

REACTIONS (15)
  - Encephalopathy [Recovered/Resolved]
  - Chills [Unknown]
  - Dizziness [Unknown]
  - Dizziness [Unknown]
  - Diarrhoea [Unknown]
  - Urinary incontinence [Unknown]
  - Depressed level of consciousness [Unknown]
  - Decreased appetite [Unknown]
  - Haemoglobin decreased [Unknown]
  - Amylase abnormal [Unknown]
  - Asterixis [Unknown]
  - Pyrexia [Unknown]
  - CSF protein increased [Unknown]
  - Blood pressure fluctuation [Unknown]
  - Orthostatic hypotension [Unknown]
